FAERS Safety Report 4325687-3 (Version None)
Quarter: 2004Q1

REPORT INFORMATION
  Report Type: 
  Country: None (occurrence: None)
  Receive Date: 20040323
  Receipt Date: 20040309
  Transmission Date: 20041129
  Serious: No
  Sender: FDA-Public Use
  Company Number: 2004-BP-01783BP

PATIENT
  Age: 30 Year
  Sex: Female

DRUGS (2)
  1. VIRAMUNE [Suspect]
     Indication: HIV INFECTION
     Dosage: NR
     Dates: start: 20031223
  2. COMBIVIR [Concomitant]

REACTIONS (8)
  - COMPLICATIONS OF MATERNAL EXPOSURE TO THERAPEUTIC DRUGS [None]
  - COUGH [None]
  - FATIGUE [None]
  - HEADACHE [None]
  - HEPATOTOXICITY [None]
  - MATERNAL DRUGS AFFECTING FOETUS [None]
  - NAUSEA [None]
  - STILLBIRTH [None]
